FAERS Safety Report 21520824 (Version 2)
Quarter: 2022Q4

REPORT INFORMATION
  Report Type: Spontaneous
  Country: CA (occurrence: CA)
  Receive Date: 20221028
  Receipt Date: 20221205
  Transmission Date: 20230113
  Serious: Yes (Hospitalization, Other)
  Sender: FDA-Public Use
  Company Number: CA-PFIZER INC-202201070163

PATIENT
  Age: 68 Year
  Sex: Female
  Weight: 85 kg

DRUGS (15)
  1. RUXIENCE [Suspect]
     Active Substance: RITUXIMAB-PVVR
     Indication: Rheumatoid arthritis
     Dosage: 1000MG, DAY 1 AND DAY 15
     Route: 042
     Dates: start: 20201123, end: 20201207
  2. RUXIENCE [Suspect]
     Active Substance: RITUXIMAB-PVVR
     Dosage: 1000 MG EVERY 6 MONTH
     Route: 042
     Dates: start: 2020
  3. RUXIENCE [Suspect]
     Active Substance: RITUXIMAB-PVVR
     Dosage: 1000MG, DAY 1 AND DAY 15
     Route: 042
     Dates: start: 20210526, end: 20210609
  4. RUXIENCE [Suspect]
     Active Substance: RITUXIMAB-PVVR
     Dosage: 1000 MG SINGLE DOSE NOT YET ADMINISTERED
     Route: 042
  5. RUXIENCE [Suspect]
     Active Substance: RITUXIMAB-PVVR
     Dosage: 1000 MG
     Route: 042
     Dates: start: 20220114, end: 20220114
  6. RUXIENCE [Suspect]
     Active Substance: RITUXIMAB-PVVR
     Dosage: 1000 MG
     Route: 042
     Dates: start: 20220114, end: 20220128
  7. RUXIENCE [Suspect]
     Active Substance: RITUXIMAB-PVVR
     Dosage: 1000 MG, DAY 15 SUBSEQUENT TREATMENT 195 MINUTE INFUSION.
     Route: 042
     Dates: start: 20220128, end: 20220128
  8. RUXIENCE [Suspect]
     Active Substance: RITUXIMAB-PVVR
     Dosage: 1000 MG, DAY 15 SUBSEQUENT TREATMENT 195 MINUTE INFUSION.
     Route: 042
  9. RUXIENCE [Suspect]
     Active Substance: RITUXIMAB-PVVR
     Dosage: 1000 MG, DAY 1 AND 15 SUBSEQUENT TREATMENT
     Route: 042
     Dates: start: 20221005
  10. RUXIENCE [Suspect]
     Active Substance: RITUXIMAB-PVVR
     Dosage: 1000 MG, DAY 1 AND 15 SUBSEQUENT TREATMENT
     Route: 042
     Dates: start: 20221005, end: 20221021
  11. RUXIENCE [Suspect]
     Active Substance: RITUXIMAB-PVVR
     Dosage: 1000 MG, DAY 1 AND 15 SUBSEQUENT TREATMENT
     Route: 042
     Dates: start: 20221021
  12. METHOTREXATE [Concomitant]
     Active Substance: METHOTREXATE
     Dosage: 15 MG WEEKLY
     Route: 048
  13. METOPROLOL [Concomitant]
     Active Substance: METOPROLOL
     Dosage: UNK
  14. PREDNISONE [Concomitant]
     Active Substance: PREDNISONE
     Dosage: UNK
  15. PREDNISONE [Concomitant]
     Active Substance: PREDNISONE
     Dosage: 5 MG

REACTIONS (4)
  - COVID-19 pneumonia [Unknown]
  - COVID-19 [Recovered/Resolved]
  - Weight decreased [Unknown]
  - Asthenia [Not Recovered/Not Resolved]

NARRATIVE: CASE EVENT DATE: 20220101
